FAERS Safety Report 21689600 (Version 1)
Quarter: 2022Q4

REPORT INFORMATION
  Report Type: Report from Study
  Country: US (occurrence: US)
  Receive Date: 20221206
  Receipt Date: 20221206
  Transmission Date: 20230113
  Serious: No
  Sender: FDA-Public Use
  Company Number: US-ABBVIE-22K-163-4484147-00

PATIENT
  Age: 54 Year
  Sex: Male
  Weight: 90.718 kg

DRUGS (5)
  1. HUMIRA [Suspect]
     Active Substance: ADALIMUMAB
     Indication: Ankylosing spondylitis
     Dosage: CITRATE FREE
     Route: 058
     Dates: start: 2010
  2. LEVOTHYROXINE [Concomitant]
     Active Substance: LEVOTHYROXINE
     Indication: Product used for unknown indication
     Dosage: FORM STRENGTH: 100 MICROGRAM?PILL
     Route: 048
     Dates: start: 2010
  3. PFIZER-BIONTECH COVID-19 VACCINE [Concomitant]
     Active Substance: TOZINAMERAN
     Indication: COVID-19 immunisation
     Dosage: TIME INTERVAL: 1 TOTAL
     Route: 030
  4. RIVAROXABAN [Concomitant]
     Active Substance: RIVAROXABAN
     Indication: Product used for unknown indication
     Dosage: PILL?FORM STRENGTH: 10 MILLIGRAM
     Route: 048
     Dates: start: 2021
  5. ATORVASTATIN [Concomitant]
     Active Substance: ATORVASTATIN
     Indication: Product used for unknown indication
     Dosage: PILL?FORM STRENGTH: 40 MILLIGRAM
     Route: 048
     Dates: start: 2021

REACTIONS (7)
  - Urinary tract disorder [Unknown]
  - Haematospermia [Not Recovered/Not Resolved]
  - COVID-19 [Recovered/Resolved]
  - Prostatitis [Not Recovered/Not Resolved]
  - Fungal infection [Not Recovered/Not Resolved]
  - Oral fungal infection [Unknown]
  - Tongue fungal infection [Unknown]

NARRATIVE: CASE EVENT DATE: 20201019
